FAERS Safety Report 8762618 (Version 1)
Quarter: 2012Q4

REPORT INFORMATION
  Report Type: Report from Study
  Country: PL (occurrence: PL)
  Receive Date: 20120830
  Receipt Date: 20120830
  Transmission Date: 20130627
  Serious: Yes (Hospitalization)
  Sender: FDA-Public Use
  Company Number: PL-ROCHE-1001555

PATIENT
  Sex: Male
  Weight: 60 kg

DRUGS (8)
  1. INVIRASE [Suspect]
     Indication: HIV INFECTION
  2. FUZEON [Suspect]
     Indication: HIV INFECTION
     Dates: end: 200708
  3. LOPINAVIR [Suspect]
     Indication: HIV INFECTION
  4. ETRAVIRINE [Suspect]
     Indication: HIV INFECTION
  5. TENOFOVIR [Suspect]
     Indication: HIV INFECTION
  6. LAMIVUDINE [Suspect]
     Indication: HIV INFECTION
     Dates: start: 200005
  7. DARUNAVIR [Suspect]
     Indication: HIV INFECTION
     Dates: start: 200708
  8. RALTEGRAVIR [Suspect]
     Indication: HIV INFECTION

REACTIONS (1)
  - Arrhythmia [Unknown]
